FAERS Safety Report 7319556-4 (Version None)
Quarter: 2011Q1

REPORT INFORMATION
  Report Type: 
  Country: None (occurrence: None)
  Receive Date: 20110228
  Receipt Date: 20100518
  Transmission Date: 20110831
  Serious: No
  Sender: FDA-Public Use
  Company Number: A0860312A

PATIENT
  Age: 21 Year
  Sex: Female

DRUGS (2)
  1. KLONOPIN [Concomitant]
  2. LAMICTAL [Suspect]
     Dosage: 50MG UNKNOWN
     Route: 065

REACTIONS (1)
  - ALOPECIA [None]
